FAERS Safety Report 5069090-X (Version None)
Quarter: 2006Q3

REPORT INFORMATION
  Report Type: 
  Country: None (occurrence: None)
  Receive Date: 20060731
  Receipt Date: 20060718
  Transmission Date: 20061208
  Serious: Yes (Hospitalization)
  Sender: FDA-Public Use
  Company Number: 2005US001140

PATIENT
  Age: 70 Year
  Sex: Female
  Weight: 96.4 kg

DRUGS (1)
  1. ADENOSCAN [Suspect]
     Indication: SCAN MYOCARDIAL PERFUSION
     Dosage: TOTAL DOSE, IV NOS
     Route: 042
     Dates: start: 20050627, end: 20050627

REACTIONS (3)
  - BLOOD GLUCOSE INCREASED [None]
  - HYPERTENSION [None]
  - VOMITING [None]
